FAERS Safety Report 4941151-2 (Version None)
Quarter: 2006Q1

REPORT INFORMATION
  Report Type: 
  Country: None (occurrence: None)
  Receive Date: 20060310
  Receipt Date: 20060310
  Transmission Date: 20060701
  Serious: Yes (Other)
  Sender: FDA-Public Use
  Company Number: None

PATIENT
  Age: 61 Year
  Sex: Female

DRUGS (3)
  1. CISPLATIN [Suspect]
     Indication: CERVIX CARCINOMA
  2. GEMCITABINE [Suspect]
  3. RADIATION [Suspect]

REACTIONS (2)
  - ACTIVITIES OF DAILY LIVING IMPAIRED [None]
  - DYSPNOEA [None]
